FAERS Safety Report 23779727 (Version 1)
Quarter: 2024Q2

REPORT INFORMATION
  Report Type: Spontaneous
  Country: FR (occurrence: FR)
  Receive Date: 20240424
  Receipt Date: 20240424
  Transmission Date: 20240716
  Serious: Yes (Hospitalization)
  Sender: FDA-Public Use
  Company Number: FR-LEADIANT BIOSCIENCES, INC.-2024LBI000124

PATIENT
  Age: 2 Month
  Sex: Male
  Weight: 2.96 kg

DRUGS (3)
  1. CARNITOR [Suspect]
     Active Substance: LEVOCARNITINE
     Indication: Metabolic disorder
     Dosage: 1 GRAM/5 MILLILITER SOLUTION
     Route: 042
     Dates: start: 20240307, end: 20240307
  2. DEXTROSE\POTASSIUM CHLORIDE\SODIUM CHLORIDE [Suspect]
     Active Substance: DEXTROSE\POTASSIUM CHLORIDE\SODIUM CHLORIDE
     Indication: Metabolic disorder
     Dosage: UNK
     Route: 042
     Dates: start: 20240307, end: 20240307
  3. GLYCERIN\LECITHIN\TRIGLYCERIDES,UNSPECIFIED LENGTH\SOYBEAN OIL [Suspect]
     Active Substance: GLYCERIN\LECITHIN\TRIGLYCERIDES,UNSPECIFIED LENGTH\SOYBEAN OIL
     Indication: Metabolic disorder
     Dosage: UNK
     Route: 042
     Dates: start: 20240307, end: 20240307

REACTIONS (2)
  - Infusion site extravasation [Recovered/Resolved]
  - Oedema peripheral [Recovering/Resolving]

NARRATIVE: CASE EVENT DATE: 20240307
